FAERS Safety Report 12758834 (Version 18)
Quarter: 2017Q2

REPORT INFORMATION
  Report Type: Spontaneous
  Country: FI (occurrence: FI)
  Receive Date: 20160919
  Receipt Date: 20170515
  Transmission Date: 20170830
  Serious: Yes (Death, Life-Threatening, Hospitalization, Other)
  Sender: FDA-Public Use
  Company Number: FI-SA-2014SA128650

PATIENT
  Age: 26 Year
  Sex: Female
  Weight: 89 kg

DRUGS (12)
  1. LEMTRADA [Suspect]
     Active Substance: ALEMTUZUMAB
     Indication: MULTIPLE SCLEROSIS
     Route: 041
     Dates: start: 201509, end: 201509
  2. ACYCLOVIR. [Concomitant]
     Active Substance: ACYCLOVIR
  3. SOMAC [Concomitant]
     Active Substance: PANTOPRAZOLE SODIUM
  4. TAZOBACTAM/PIPERACILLIN [Concomitant]
     Dates: start: 201609
  5. ETHINYLESTRADIOL [Concomitant]
     Active Substance: ETHINYL ESTRADIOL
  6. METHYLPREDNISOLONE. [Concomitant]
     Active Substance: METHYLPREDNISOLONE
  7. LEMTRADA [Suspect]
     Active Substance: ALEMTUZUMAB
     Indication: MULTIPLE SCLEROSIS
     Route: 041
     Dates: start: 20140915, end: 20140919
  8. PANADOL FORTE [Concomitant]
     Active Substance: ACETAMINOPHEN\CAFFEINE
  9. RANITIDINE. [Concomitant]
     Active Substance: RANITIDINE
  10. HISTEC [Concomitant]
     Active Substance: CETIRIZINE HYDROCHLORIDE
  11. METHYLPREDNISOLONE. [Concomitant]
     Active Substance: METHYLPREDNISOLONE
     Dates: start: 20140918, end: 20140919
  12. NUVARING [Concomitant]
     Active Substance: ETHINYL ESTRADIOL\ETONOGESTREL

REACTIONS (38)
  - Coma hepatic [Not Recovered/Not Resolved]
  - Hepatic enzyme increased [Not Recovered/Not Resolved]
  - Histiocytosis haematophagic [Not Recovered/Not Resolved]
  - Brain oedema [Unknown]
  - Tachycardia [Unknown]
  - Rash pruritic [Recovered/Resolved]
  - Vomiting [Unknown]
  - Lymphocyte count increased [Not Recovered/Not Resolved]
  - Anaemia [Not Recovered/Not Resolved]
  - Adrenal neoplasm [Not Recovered/Not Resolved]
  - Brain herniation [Unknown]
  - Cholecystitis [Recovered/Resolved]
  - Cerebral haemorrhage [Unknown]
  - Abdominal pain upper [Recovered/Resolved]
  - C-reactive protein increased [Recovering/Resolving]
  - Ascites [Unknown]
  - Pulmonary congestion [Unknown]
  - Heart rate decreased [Recovered/Resolved]
  - Blood immunoglobulin E decreased [Unknown]
  - Food allergy [Unknown]
  - Hepatic necrosis [Fatal]
  - Rash [Recovered/Resolved]
  - Therapeutic response unexpected [Unknown]
  - Loss of consciousness [Not Recovered/Not Resolved]
  - Hyperaemia [Not Recovered/Not Resolved]
  - Thrombocytopenia [Not Recovered/Not Resolved]
  - Histiocytosis haematophagic [Unknown]
  - Autoimmune hepatitis [Unknown]
  - Pleural effusion [Unknown]
  - Nausea [Unknown]
  - Hepatic failure [Fatal]
  - Pyrexia [Unknown]
  - Dyspnoea [Recovered/Resolved]
  - Nephropathy [Unknown]
  - Abdominal pain upper [Not Recovered/Not Resolved]
  - Constipation [Recovered/Resolved]
  - Leukocytosis [Unknown]
  - Gastrointestinal haemorrhage [Unknown]

NARRATIVE: CASE EVENT DATE: 201409
